FAERS Safety Report 23835645 (Version 2)
Quarter: 2024Q2

REPORT INFORMATION
  Report Type: Spontaneous
  Country: NL (occurrence: NL)
  Receive Date: 20240509
  Receipt Date: 20240522
  Transmission Date: 20240716
  Serious: Yes (Other)
  Sender: FDA-Public Use
  Company Number: None

PATIENT
  Age: 23 Year
  Sex: Male
  Weight: 75 kg

DRUGS (1)
  1. MINOXIDIL [Suspect]
     Active Substance: MINOXIDIL
     Indication: Androgenetic alopecia
     Dosage: 10 SPRAYS PER DAY (1MG TOTAL);MINOXIDIL OPL  / BRAND NAME NOT SPECIFIED
     Route: 003
     Dates: start: 20240308

REACTIONS (2)
  - Deafness transitory [Recovered/Resolved]
  - Dizziness [Recovered/Resolved]
